FAERS Safety Report 7683357-8 (Version None)
Quarter: 2011Q3

REPORT INFORMATION
  Report Type: 
  Country: None (occurrence: None)
  Receive Date: 20110812
  Receipt Date: 20110812
  Transmission Date: 20111222
  Serious: Yes (Death)
  Sender: FDA-Public Use
  Company Number: None

PATIENT
  Age: 77 Year
  Sex: Male

DRUGS (8)
  1. LOSARTAN [Concomitant]
  2. REVLIMID [Suspect]
     Indication: MULTIPLE MYELOMA
     Dosage: REVLIMID 10 MG DAILY X21D/28D ORALLY
     Route: 048
     Dates: start: 20081101, end: 20090301
  3. REVLIMID [Suspect]
     Indication: MULTIPLE MYELOMA
     Dosage: REVLIMID 10 MG DAILY X21D/28D ORALLY
     Route: 048
     Dates: start: 20110501, end: 20110801
  4. CLOPIDOGREL [Concomitant]
  5. METOPROLOL TARTRATE [Concomitant]
  6. PANTOPRAZOLE [Concomitant]
  7. PRAVASTATIN [Concomitant]
  8. ASPIRIN [Concomitant]

REACTIONS (4)
  - VENTRICULAR TACHYCARDIA [None]
  - CHEST PAIN [None]
  - CARDIAC ARREST [None]
  - LOSS OF CONSCIOUSNESS [None]
